FAERS Safety Report 24126573 (Version 1)
Quarter: 2024Q3

REPORT INFORMATION
  Report Type: Spontaneous
  Country: US (occurrence: US)
  Receive Date: 20240723
  Receipt Date: 20240723
  Transmission Date: 20241017
  Serious: No
  Sender: MYOVANT SCIENCES
  Company Number: US-MYOVANT SCIENCES GMBH-2024MYSCI0300567

PATIENT
  Age: 22 Year
  Sex: Female

DRUGS (2)
  1. MYFEMBREE [Suspect]
     Active Substance: ESTRADIOL HEMIHYDRATE\NORETHINDRONE ACETATE\RELUGOLIX
     Indication: Endometriosis
     Dosage: 1 TAB, QD
     Route: 048
     Dates: start: 202309, end: 20240314
  2. JUNEL [Concomitant]
     Active Substance: ETHINYL ESTRADIOL\NORETHINDRONE ACETATE
     Indication: Endometriosis
     Dosage: 1 TAB, QD
     Route: 048
     Dates: start: 20240315

REACTIONS (2)
  - Therapy interrupted [Unknown]
  - Insurance issue [Recovered/Resolved]

NARRATIVE: CASE EVENT DATE: 20240315
